FAERS Safety Report 7345174-8 (Version None)
Quarter: 2011Q1

REPORT INFORMATION
  Report Type: 
  Country: None (occurrence: None)
  Receive Date: 20110310
  Receipt Date: 20110307
  Transmission Date: 20110831
  Serious: Yes (Hospitalization, Other)
  Sender: FDA-Public Use
  Company Number: US-PFIZER INC-2010154489

PATIENT
  Sex: Female

DRUGS (27)
  1. TRAZODONE [Concomitant]
     Indication: DEPRESSION
     Dosage: UNK
     Dates: start: 20040101
  2. PREMARIN [Concomitant]
     Indication: BLOOD OESTROGEN
     Dosage: UNK
     Dates: start: 20040101
  3. AMOXICILLIN [Concomitant]
     Indication: ANTIBIOTIC THERAPY
     Dosage: UNK
     Dates: start: 20040101, end: 20080101
  4. DILAUDID [Concomitant]
     Indication: BACK PAIN
     Dosage: UNK
     Dates: start: 20040101, end: 20060101
  5. PREDNISONE [Concomitant]
     Indication: HYPERSENSITIVITY
     Dosage: UNK
     Dates: start: 20050101, end: 20090101
  6. CEPHALEXIN [Concomitant]
     Indication: BACTERIAL INFECTION
     Dosage: UNK
     Dates: start: 20050101, end: 20080101
  7. PROMETHAZINE [Concomitant]
     Indication: HYPERSENSITIVITY
     Dosage: UNK
     Dates: start: 20040101, end: 20100101
  8. OMEPRAZOLE [Concomitant]
     Indication: GASTROOESOPHAGEAL REFLUX DISEASE
     Dosage: UNK
     Dates: start: 20060101, end: 20100101
  9. METOCLOPRAMIDE [Concomitant]
     Indication: GASTROOESOPHAGEAL REFLUX DISEASE
     Dosage: UNK
     Dates: start: 20050101, end: 20100101
  10. METOCLOPRAMIDE [Concomitant]
  11. CLONIDINE [Concomitant]
     Indication: HYPERTENSION
     Dosage: UNK
     Dates: start: 20050101, end: 20080101
  12. VICODIN [Concomitant]
     Indication: BACK PAIN
     Dosage: UNK
     Dates: start: 20040101
  13. HYOSCYAMINE [Concomitant]
     Indication: GASTROINTESTINAL DISORDER
     Dosage: UNK
     Dates: start: 20040101, end: 20090101
  14. POLYETHYLENE GLYCOL [Concomitant]
     Dosage: UNK
     Dates: start: 20060101, end: 20100101
  15. CHANTIX [Suspect]
     Dosage: UNK
     Dates: start: 20091031, end: 20091130
  16. OXYCODONE [Concomitant]
     Indication: BACK PAIN
     Dosage: UNK
     Dates: start: 20060101, end: 20100101
  17. NAPROXEN [Concomitant]
     Indication: BACK PAIN
     Dosage: UNK
     Dates: start: 20050101, end: 20090101
  18. AZITHROMYCIN [Concomitant]
     Indication: ANTIBIOTIC THERAPY
     Dosage: UNK
     Dates: start: 20060101, end: 20100101
  19. CIPROFLOXACIN [Concomitant]
     Indication: BACTERIAL INFECTION
     Dosage: UNK
     Dates: start: 20060101, end: 20090101
  20. OMEPRAZOLE [Concomitant]
  21. LACTULOSE [Concomitant]
     Dosage: UNK
     Dates: start: 20050101, end: 20100101
  22. CHANTIX [Suspect]
     Dosage: UNK
     Dates: start: 20090109, end: 20090331
  23. IMIPRAMINE [Concomitant]
     Indication: DEPRESSION
     Dosage: UNK
     Dates: start: 20060101
  24. CHANTIX [Suspect]
     Indication: SMOKING CESSATION THERAPY
     Dosage: STARTER PACKS AND CONTINUING PACKS
     Route: 048
     Dates: start: 20070706, end: 20070901
  25. FENTANYL [Concomitant]
     Indication: BACK PAIN
     Dosage: UNK
     Dates: start: 20060101, end: 20090101
  26. SKELAXIN [Concomitant]
     Indication: MUSCLE RELAXANT THERAPY
     Dosage: UNK
     Dates: start: 20060101, end: 20080101
  27. AMOXICILLIN + CLAVULANATE POTASSIUM [Concomitant]
     Indication: ANTIBIOTIC THERAPY
     Dosage: UNK
     Dates: start: 20060101, end: 20100101

REACTIONS (6)
  - LOSS OF CONSCIOUSNESS [None]
  - CONTUSION [None]
  - HAEMATOMA [None]
  - MULTIPLE INJURIES [None]
  - CONVULSION [None]
  - LOWER LIMB FRACTURE [None]
